FAERS Safety Report 8986634 (Version 4)
Quarter: 2013Q2

REPORT INFORMATION
  Report Type: Spontaneous
  Country: US (occurrence: US)
  Receive Date: 20121226
  Receipt Date: 20130410
  Transmission Date: 20140414
  Serious: No
  Sender: FDA-Public Use
  Company Number: US-009507513-1212USA008419

PATIENT
  Age: 19 Year
  Sex: Female
  Weight: 50.34 kg

DRUGS (2)
  1. IMPLANON [Suspect]
     Indication: CONTRACEPTION
     Dosage: UNK
     Dates: start: 20121219
  2. IMPLANON [Suspect]
     Dosage: UNK
     Dates: start: 20090821, end: 20121219

REACTIONS (5)
  - Contusion [Recovering/Resolving]
  - Device breakage [Recovered/Resolved]
  - Incorrect drug administration duration [Unknown]
  - Metrorrhagia [Unknown]
  - Amenorrhoea [Unknown]
